FAERS Safety Report 24780420 (Version 1)
Quarter: 2024Q4

REPORT INFORMATION
  Report Type: Spontaneous
  Country: GB (occurrence: GB)
  Receive Date: 20241227
  Receipt Date: 20241227
  Transmission Date: 20250114
  Serious: Yes (Other)
  Sender: HETERO
  Company Number: None

PATIENT
  Age: 64 Year
  Sex: Female
  Weight: 83 kg

DRUGS (4)
  1. DAPAGLIFLOZIN [Suspect]
     Active Substance: DAPAGLIFLOZIN
     Indication: Product used for unknown indication
     Dosage: 1 DOSAGE FORM, QD (ONE TO BE TAKEN DAILY)
     Route: 065
     Dates: start: 20241118
  2. AMOXICILLIN [Concomitant]
     Active Substance: AMOXICILLIN
     Indication: Emphysema
     Dosage: 1 DOSAGE FORM, TID, FOR 5-7 DAYS IF CHEST INFECTION OCCURS
     Route: 065
     Dates: start: 20241118
  3. CLOTRIMAZOLE [Concomitant]
     Active Substance: CLOTRIMAZOLE
     Indication: Product used for unknown indication
     Dosage: 20 GRAM, APPLY TWICE A DAY
     Route: 065
     Dates: start: 20241204
  4. FLUCONAZOLE [Concomitant]
     Active Substance: FLUCONAZOLE
     Indication: Product used for unknown indication
     Dosage: ONE TO BE TAKEN IMMEDIATELY
     Route: 065
     Dates: start: 20241204

REACTIONS (1)
  - Rectal haemorrhage [Recovered/Resolved]

NARRATIVE: CASE EVENT DATE: 20241120
